FAERS Safety Report 6043469-1 (Version None)
Quarter: 2009Q1

REPORT INFORMATION
  Report Type: 
  Country: None (occurrence: None)
  Receive Date: 20090115
  Receipt Date: 20081223
  Transmission Date: 20090719
  Serious: Yes (Death)
  Sender: FDA-Public Use
  Company Number: 111009

PATIENT
  Age: 2 Month
  Sex: Male

DRUGS (5)
  1. PSEUDOEPHEDRINE HCL [Suspect]
  2. DIPHENHYDRAMINE HCL [Suspect]
  3. IBUPROFEN [Concomitant]
  4. DOXYLAMINE [Concomitant]
  5. ETHANOL [Concomitant]

REACTIONS (4)
  - CARDIAC ARREST [None]
  - CORNEAL OEDEMA [None]
  - PUPIL FIXED [None]
  - VICTIM OF HOMICIDE [None]
